FAERS Safety Report 9281759 (Version 2)
Quarter: 2014Q1

REPORT INFORMATION
  Report Type: Report from Study
  Country: US (occurrence: US)
  Receive Date: 20130510
  Receipt Date: 20140224
  Transmission Date: 20141002
  Serious: Yes (Other)
  Sender: FDA-Public Use
  Company Number: US-ROCHE-1220190

PATIENT
  Sex: 0

DRUGS (2)
  1. CAPECITABINE [Suspect]
     Indication: NEOPLASM
     Dosage: 2 WEEKS ON AND 1 WEEK OFF.
     Route: 048
  2. LBY135 (ANTI-DR5 AGONISTIC ANTIBODY) [Suspect]
     Indication: NEOPLASM
     Dosage: 1-40 MG/KG
     Route: 042

REACTIONS (17)
  - Mucosal inflammation [Unknown]
  - Diarrhoea [Unknown]
  - Colitis [Unknown]
  - Electrocardiogram ST segment depression [Unknown]
  - Dyspnoea [Unknown]
  - Ascites [Unknown]
  - Deep vein thrombosis [Unknown]
  - Dehydration [Unknown]
  - Fatigue [Unknown]
  - Hypokalaemia [Unknown]
  - Pulmonary embolism [Unknown]
  - Hyperbilirubinaemia [Unknown]
  - Back pain [Unknown]
  - Anaemia [Unknown]
  - Hyponatraemia [Unknown]
  - Palmar-plantar erythrodysaesthesia syndrome [Unknown]
  - Lymphocyte count decreased [Unknown]
